FAERS Safety Report 10921762 (Version 1)
Quarter: 2015Q1

REPORT INFORMATION
  Report Type: Spontaneous
  Country: US (occurrence: US)
  Receive Date: 20150317
  Receipt Date: 20150317
  Transmission Date: 20150721
  Serious: Yes (Disabling, Other)
  Sender: FDA-Public Use
  Company Number: US-WATSON-2015-04708

PATIENT
  Age: 56 Year
  Sex: Male

DRUGS (1)
  1. TESTOSTERONE CYPIONATE (WATSON LABORATORIES) [Suspect]
     Active Substance: TESTOSTERONE CYPIONATE
     Indication: BLOOD TESTOSTERONE DECREASED
     Dosage: 200 MG, 1/TWO WEEKS
     Route: 030
     Dates: start: 2007, end: 20140418

REACTIONS (7)
  - Haemoglobin increased [Not Recovered/Not Resolved]
  - Sleep apnoea syndrome [Not Recovered/Not Resolved]
  - Blood disorder [Not Recovered/Not Resolved]
  - Seizure [Not Recovered/Not Resolved]
  - Disability [None]
  - Weight increased [Not Recovered/Not Resolved]
  - Blood testosterone decreased [Not Recovered/Not Resolved]

NARRATIVE: CASE EVENT DATE: 2014
